FAERS Safety Report 5035311-2 (Version None)
Quarter: 2006Q2

REPORT INFORMATION
  Report Type: 
  Country: None (occurrence: None)
  Receive Date: 20060519
  Receipt Date: 20060330
  Transmission Date: 20061013
  Serious: No
  Sender: FDA-Public Use
  Company Number: TPA2006A00350

PATIENT
  Age: 35 Year
  Sex: Male
  Weight: 136.0791 kg

DRUGS (3)
  1. ROZEREM [Suspect]
     Indication: INSOMNIA
     Dosage: 8 MG, HS, PER ORAL
     Route: 048
     Dates: start: 20060208, end: 20060218
  2. LAMICTAL (ALL OTHER THERAPEUTIC PRODUCTS) (200 MILLIGRAM) [Concomitant]
  3. TOPROL (METOPROLOL) (50 MILLIGRAM) [Concomitant]

REACTIONS (1)
  - RASH [None]
